FAERS Safety Report 6647468-8 (Version None)
Quarter: 2010Q1

REPORT INFORMATION
  Report Type: 
  Country: None (occurrence: None)
  Receive Date: 20100323
  Receipt Date: 20100323
  Transmission Date: 20100710
  Serious: No
  Sender: FDA-Public Use
  Company Number: None

PATIENT
  Sex: Female
  Weight: 89.8122 kg

DRUGS (2)
  1. MICRONOR [Suspect]
     Indication: ORAL CONTRACEPTION
     Dosage: PO
     Route: 048
     Dates: start: 20071217
  2. MICRONOR [Suspect]
     Indication: ORAL CONTRACEPTION
     Dosage: PO
     Route: 048
     Dates: start: 20080307

REACTIONS (3)
  - AMENORRHOEA [None]
  - DRUG EXPOSURE DURING PREGNANCY [None]
  - DRUG EXPOSURE VIA BREAST MILK [None]
